FAERS Safety Report 4735880-3 (Version None)
Quarter: 2005Q3

REPORT INFORMATION
  Report Type: 
  Country: None (occurrence: None)
  Receive Date: 20050804
  Receipt Date: 20050804
  Transmission Date: 20060218
  Serious: Yes (Life-Threatening)
  Sender: FDA-Public Use
  Company Number: None

PATIENT
  Sex: Male
  Weight: 2.96 kg

DRUGS (7)
  1. SURVANTA [Suspect]
     Indication: ACUTE RESPIRATORY DISTRESS SYNDROME
     Dosage: 12ML ET TUBE
     Dates: start: 20050616
  2. AMPICILLIN [Concomitant]
  3. CEFOTAXIME [Concomitant]
  4. PHENOBARBITAL [Concomitant]
  5. ACYCLOVIR [Concomitant]
  6. VANOMYCIN [Concomitant]
  7. MORPHINE [Concomitant]

REACTIONS (5)
  - BRADYARRHYTHMIA [None]
  - CONVULSION [None]
  - HYPOTENSION [None]
  - RESPIRATORY DISTRESS [None]
  - THROMBOCYTOPENIA [None]
